FAERS Safety Report 8999051 (Version 1)
Quarter: 2013Q1

REPORT INFORMATION
  Report Type: Spontaneous
  Country: US (occurrence: US)
  Receive Date: 20130103
  Receipt Date: 20130103
  Transmission Date: 20140127
  Serious: Yes (Other)
  Sender: FDA-Public Use
  Company Number: US-BAYER-2012-136463

PATIENT
  Age: 26 Year
  Sex: Female

DRUGS (5)
  1. YASMIN [Suspect]
  2. LIDEX [Concomitant]
  3. FLEXERIL [Concomitant]
  4. FLONASE [Concomitant]
  5. MOTRIN [Concomitant]

REACTIONS (1)
  - Deep vein thrombosis [Recovered/Resolved]
